FAERS Safety Report 14577309 (Version 1)
Quarter: 2018Q1

REPORT INFORMATION
  Report Type: Spontaneous
  Country: US (occurrence: US)
  Receive Date: 20180226
  Receipt Date: 20180226
  Transmission Date: 20180509
  Serious: Yes (Hospitalization)
  Sender: FDA-Public Use
  Company Number: None

PATIENT
  Sex: Female

DRUGS (9)
  1. SUTENT [Suspect]
     Active Substance: SUNITINIB MALATE
     Indication: THYROID CANCER
     Route: 048
     Dates: start: 20170502
  2. CLONAZEPAM, CYCLOBENZAPR, DALIRESP [Concomitant]
  3. ALBUTEROL, ASPIRIN, CALCIUM [Concomitant]
  4. SERTRALINE, TOPROL XL, TYLENOL [Concomitant]
  5. DULCOLAX, DULERA, FLUTICASONE [Concomitant]
  6. OXYCOD/APAP, PROAIR, SENNA [Concomitant]
  7. IMODIUM A-D, IPRATROPIUM, LEVOTHYROXIN [Concomitant]
  8. MAGNESIUM CHLORIDE, MS CONTIN [Concomitant]
  9. XARELTO, ZOFRAN [Concomitant]

REACTIONS (3)
  - Eating disorder [None]
  - Asthenia [None]
  - Weight decreased [None]
